FAERS Safety Report 7834361-8 (Version None)
Quarter: 2011Q4

REPORT INFORMATION
  Report Type: 
  Country: None (occurrence: None)
  Receive Date: 20111024
  Receipt Date: 20111020
  Transmission Date: 20120403
  Serious: Yes (Other)
  Sender: FDA-Public Use
  Company Number: PHHY2011FR89097

PATIENT
  Sex: Female
  Weight: 38 kg

DRUGS (3)
  1. VITAMIN B-12 [Concomitant]
  2. BISPHOSPHONATES [Concomitant]
  3. ZOLEDRONOC ACID [Suspect]
     Indication: OSTEOPOROSIS
     Dosage: 5 MG, YEARLY
     Route: 042

REACTIONS (4)
  - BONE DISORDER [None]
  - OSTEOLYSIS [None]
  - INFECTION [None]
  - IMPAIRED HEALING [None]
